FAERS Safety Report 9109431 (Version 5)
Quarter: 2013Q2

REPORT INFORMATION
  Report Type: Spontaneous
  Country: FR (occurrence: FR)
  Receive Date: 20130222
  Receipt Date: 20130614
  Transmission Date: 20140414
  Serious: Yes (Hospitalization, Other)
  Sender: FDA-Public Use
  Company Number: FR-AMGEN-FRASP2013011378

PATIENT
  Sex: Female

DRUGS (2)
  1. ARANESP [Suspect]
     Indication: NEPHROGENIC ANAEMIA
     Dosage: 20 MUG, QWK
  2. NEORECORMON [Concomitant]
     Dosage: 6000 UNK, UNK

REACTIONS (3)
  - Haemoglobin decreased [Recovered/Resolved]
  - Renal failure chronic [Unknown]
  - Drug dose omission [Unknown]
